FAERS Safety Report 11952496 (Version 1)
Quarter: 2016Q1

REPORT INFORMATION
  Report Type: Spontaneous
  Country: GB (occurrence: GB)
  Receive Date: 20160126
  Receipt Date: 20160126
  Transmission Date: 20160526
  Serious: Yes (Other)
  Sender: FDA-Public Use
  Company Number: GB-TEVA-626618ACC

PATIENT
  Age: 37 Year
  Sex: Female

DRUGS (6)
  1. CYCLIZINE [Suspect]
     Active Substance: CYCLIZINE
     Dosage: 8 DOSAGE FORMS DAILY;
  2. PREDNISOLONE. [Suspect]
     Active Substance: PREDNISOLONE
     Indication: INFLAMMATION
  3. CYCLIZINE [Suspect]
     Active Substance: CYCLIZINE
     Indication: PAIN
     Dosage: 4 DOSAGE FORMS DAILY;
  4. DIPIPANONE [Suspect]
     Active Substance: DIPIPANONE HYDROCHLORIDE
     Indication: PAIN
     Dosage: 4 DOSAGE FORMS DAILY;
  5. DIPIPANONE [Suspect]
     Active Substance: DIPIPANONE HYDROCHLORIDE
     Dosage: 8 DOSAGE FORMS DAILY;
  6. LYRICA [Concomitant]
     Active Substance: PREGABALIN
     Indication: NEURALGIA

REACTIONS (7)
  - Spinal fracture [Unknown]
  - Intentional product misuse [Unknown]
  - Off label use [Unknown]
  - Osteoporosis [Unknown]
  - Spinal compression fracture [Unknown]
  - Bone disorder [Unknown]
  - Pain [Unknown]
